FAERS Safety Report 25571810 (Version 1)
Quarter: 2025Q3

REPORT INFORMATION
  Report Type: Spontaneous
  Country: US (occurrence: US)
  Receive Date: 20250717
  Receipt Date: 20250717
  Transmission Date: 20251021
  Serious: Yes (Disabling, Other)
  Sender: PFIZER
  Company Number: US-PFIZER INC-202500142384

PATIENT
  Age: 62 Year
  Sex: Male

DRUGS (1)
  1. INLYTA [Suspect]
     Active Substance: AXITINIB
     Dosage: TAKE 3 TABLETS (3 MG TOTAL) BY
     Route: 048

REACTIONS (4)
  - Second primary malignancy [Unknown]
  - Adenoid cystic carcinoma [Unknown]
  - Respiratory disorder [Unknown]
  - Back pain [Unknown]
